FAERS Safety Report 7819172-1 (Version None)
Quarter: 2011Q4

REPORT INFORMATION
  Report Type: 
  Country: None (occurrence: None)
  Receive Date: 20111018
  Receipt Date: 20111011
  Transmission Date: 20120403
  Serious: Yes (Hospitalization, Disabling, Other)
  Sender: FDA-Public Use
  Company Number: US-AMGEN-USASP2011052636

PATIENT
  Age: 55 Year
  Sex: Female

DRUGS (2)
  1. ENBREL [Suspect]
     Indication: ARTHRITIS
     Dosage: 25 MG, 2 TIMES/WK
     Dates: start: 20040101
  2. ENBREL [Suspect]
     Indication: PSORIASIS

REACTIONS (13)
  - FOOT FRACTURE [None]
  - INJURY [None]
  - BEDRIDDEN [None]
  - PSORIASIS [None]
  - MULTIPLE FRACTURES [None]
  - CELLULITIS [None]
  - INJECTION SITE PAIN [None]
  - CHRONIC OBSTRUCTIVE PULMONARY DISEASE [None]
  - FALL [None]
  - OSTEOARTHRITIS [None]
  - WEIGHT ABNORMAL [None]
  - URINARY TRACT INFECTION [None]
  - NAUSEA [None]
